FAERS Safety Report 16831553 (Version 2)
Quarter: 2020Q3

REPORT INFORMATION
  Report Type: Spontaneous
  Country: DE (occurrence: DE)
  Receive Date: 20190920
  Receipt Date: 20200724
  Transmission Date: 20201102
  Serious: Yes (Death, Life-Threatening, Hospitalization)
  Sender: FDA-Public Use
  Company Number: DE-TEVA-2019-DE-1109227

PATIENT
  Age: 61 Year
  Sex: Male
  Weight: 106 kg

DRUGS (8)
  1. METHOTREXATE. [Suspect]
     Active Substance: METHOTREXATE
     Dosage: 20 MG
     Route: 065
  2. RITUXIMAB. [Suspect]
     Active Substance: RITUXIMAB
     Indication: RHEUMATOID ARTHRITIS
     Dosage: 2 ADMINISTRATIONS WERE GIVEN, 1000 MG
     Route: 042
     Dates: start: 20130605, end: 20130917
  3. SULFASALAZINE. [Suspect]
     Active Substance: SULFASALAZINE
     Dosage: 2000 MG
     Route: 065
  4. METHOTREXATE. [Suspect]
     Active Substance: METHOTREXATE
     Indication: RHEUMATOID ARTHRITIS
     Dosage: 10 MG
     Route: 065
  5. TAVEGIL [CLEMASTINE] [Concomitant]
     Active Substance: CLEMASTINE
     Indication: PREMEDICATION
     Dosage: 1 AMPULE, UNIT DOSE:  2 MG
     Route: 042
     Dates: start: 20130606, end: 20130917
  6. METHOTREXATE. [Suspect]
     Active Substance: METHOTREXATE
     Dosage: 15 MG
     Route: 048
     Dates: start: 20110411, end: 20130917
  7. HYDROCORTISONE. [Concomitant]
     Active Substance: HYDROCORTISONE
     Indication: PREMEDICATION
     Dosage: 100 MG
     Route: 042
     Dates: start: 20130606, end: 20130917
  8. SULFASALAZINE. [Suspect]
     Active Substance: SULFASALAZINE
     Indication: PRODUCT USED FOR UNKNOWN INDICATION
     Dosage: 3000 MG
     Route: 065

REACTIONS (13)
  - Non-Hodgkin^s lymphoma [Unknown]
  - Non-small cell lung cancer metastatic [Fatal]
  - Device related infection [Unknown]
  - Respiratory failure [Unknown]
  - Metastases to central nervous system [Fatal]
  - Device dislocation [Unknown]
  - Mantle cell lymphoma stage III [Unknown]
  - Cardiac arrest [Unknown]
  - Tracheobronchitis [Unknown]
  - Lacrimal duct neoplasm [Unknown]
  - Arrhythmia [Unknown]
  - Post procedural haemorrhage [Unknown]
  - Vocal cord paralysis [Not Recovered/Not Resolved]

NARRATIVE: CASE EVENT DATE: 20130830
